FAERS Safety Report 10771514 (Version 2)
Quarter: 2015Q1

REPORT INFORMATION
  Report Type: Spontaneous
  Country: US (occurrence: US)
  Receive Date: 20150206
  Receipt Date: 20150310
  Transmission Date: 20150721
  Serious: Yes (Other)
  Sender: FDA-Public Use
  Company Number: US-APOTEX-2015AP005929

PATIENT
  Age: 62 Year
  Sex: Female

DRUGS (4)
  1. MONTELUKAST SODIUM. [Suspect]
     Active Substance: MONTELUKAST SODIUM
     Indication: ASTHMA
     Dosage: 1 DF, SINGLE
     Dates: start: 201410, end: 201410
  2. PAPAYA ENZYME                      /01603201/ [Concomitant]
     Indication: GASTROOESOPHAGEAL REFLUX DISEASE
  3. TURMERIC                           /01079602/ [Concomitant]
     Indication: GASTROOESOPHAGEAL REFLUX DISEASE
  4. OMEPRAZOLE. [Suspect]
     Active Substance: OMEPRAZOLE
     Indication: GASTROOESOPHAGEAL REFLUX DISEASE
     Dosage: 1 DF, SINGLE
     Route: 065
     Dates: start: 201410, end: 201410

REACTIONS (13)
  - Feeling abnormal [Recovered/Resolved]
  - Chest pain [Unknown]
  - Dyspnoea [Unknown]
  - Abdominal discomfort [Recovered/Resolved]
  - Urticaria [Unknown]
  - Throat tightness [Unknown]
  - Gastrooesophageal reflux disease [Unknown]
  - Regurgitation [Recovered/Resolved]
  - Pruritus [Unknown]
  - Suicidal ideation [Recovered/Resolved]
  - Swollen tongue [Unknown]
  - Palpitations [Unknown]
  - Drug ineffective [Unknown]

NARRATIVE: CASE EVENT DATE: 201410
